FAERS Safety Report 25933443 (Version 1)
Quarter: 2025Q4

REPORT INFORMATION
  Report Type: Spontaneous
  Country: CO (occurrence: CO)
  Receive Date: 20251017
  Receipt Date: 20251017
  Transmission Date: 20260118
  Serious: Yes (Other)
  Sender: SANOFI AVENTIS
  Company Number: CO-SA-2025SA306849

PATIENT
  Sex: Female

DRUGS (2)
  1. LANTUS [Suspect]
     Active Substance: INSULIN GLARGINE
     Dosage: UNK UNK, QD
     Route: 063
     Dates: start: 2020, end: 2024
  2. APIDRA [Suspect]
     Active Substance: INSULIN GLULISINE
     Dosage: UNK
     Route: 063
     Dates: start: 2021, end: 2024

REACTIONS (2)
  - Pulmonary hypertension [Recovered/Resolved]
  - Maternal exposure during breast feeding [Unknown]

NARRATIVE: CASE EVENT DATE: 20201101
